FAERS Safety Report 22924347 (Version 3)
Quarter: 2024Q1

REPORT INFORMATION
  Report Type: Spontaneous
  Country: US (occurrence: US)
  Receive Date: 20230908
  Receipt Date: 20240130
  Transmission Date: 20240410
  Serious: Yes (Other)
  Sender: FDA-Public Use
  Company Number: US-AMERICAN REGENT INC-2023001877

PATIENT
  Age: 34 Year
  Sex: Female
  Weight: 89.342 kg

DRUGS (1)
  1. VENOFER [Suspect]
     Active Substance: IRON SUCROSE
     Indication: Anaemia of pregnancy
     Dosage: 300 MILLIGRAM IN SODIUM CHLORIDE 0.9% 250 ML
     Route: 042
     Dates: start: 20230505, end: 20230505

REACTIONS (3)
  - Maternal exposure during pregnancy [Unknown]
  - Hypersensitivity [Recovered/Resolved]
  - Product quality issue [Unknown]

NARRATIVE: CASE EVENT DATE: 20230505
